FAERS Safety Report 7144808-0 (Version None)
Quarter: 2010Q4

REPORT INFORMATION
  Report Type: 
  Country: None (occurrence: None)
  Receive Date: 20101112
  Receipt Date: 20100917
  Transmission Date: 20110411
  Serious: Yes (Other)
  Sender: FDA-Public Use
  Company Number: 1000016310

PATIENT
  Age: 38 Year
  Sex: Female

DRUGS (14)
  1. SAVELLA [Suspect]
     Indication: FIBROMYALGIA
     Dosage: 12.5 MG (12.5 MG, 1 IN 1 D), ORAL; 25 MG (12.5 MG, 2 IN 1 D), ORAL; 50 MG (25 MG, 2 IN 1 D), ORAL
     Route: 048
     Dates: start: 20100618, end: 20100618
  2. SAVELLA [Suspect]
     Indication: FIBROMYALGIA
     Dosage: 12.5 MG (12.5 MG, 1 IN 1 D), ORAL; 25 MG (12.5 MG, 2 IN 1 D), ORAL; 50 MG (25 MG, 2 IN 1 D), ORAL
     Route: 048
     Dates: start: 20100619, end: 20100620
  3. SAVELLA [Suspect]
     Indication: FIBROMYALGIA
     Dosage: 12.5 MG (12.5 MG, 1 IN 1 D), ORAL; 25 MG (12.5 MG, 2 IN 1 D), ORAL; 50 MG (25 MG, 2 IN 1 D), ORAL
     Route: 048
     Dates: start: 20100621, end: 20100624
  4. SAVELLA [Suspect]
     Indication: FIBROMYALGIA
     Dosage: 100 MG (50 MG, 2 IN 1 D), ORAL
     Route: 048
     Dates: start: 20100625, end: 20100801
  5. NAPROXEN [Concomitant]
  6. LISINOPRIL [Concomitant]
  7. PERCOCET [Concomitant]
  8. ELAVIL (AMITRIPTYLINE) (AMITRIPTYLINE) [Concomitant]
  9. VERAPAMIL [Concomitant]
  10. TOPAMAX (TOPIRAMATE) (TOPIRAMATE) [Concomitant]
  11. PROVENTIL (ALBUTEROL) (ALBUTEROL) [Concomitant]
  12. PROTONIX [Concomitant]
  13. IMITREX (SUMATRIPTAN) (SUMATRIPTAN) [Concomitant]
  14. MVI (MVI) (MVI) [Concomitant]

REACTIONS (2)
  - DEPRESSION [None]
  - SUICIDAL IDEATION [None]
